FAERS Safety Report 4807791-6 (Version None)
Quarter: 2005Q4

REPORT INFORMATION
  Report Type: 
  Country: None (occurrence: None)
  Receive Date: 20051020
  Receipt Date: 20051010
  Transmission Date: 20060501
  Serious: Yes (Hospitalization)
  Sender: FDA-Public Use
  Company Number: 2005093261

PATIENT
  Age: 52 Year
  Sex: Male

DRUGS (5)
  1. SOLU-MEDROL [Suspect]
     Indication: LIP AND/OR ORAL CAVITY CANCER
     Dosage: UNKNOWN (80 MG, UNKNOWN), INTRAVENOUS
     Route: 042
     Dates: start: 20050214, end: 20050301
  2. METOCLOPRAMIDE [Suspect]
     Indication: NAUSEA
     Dosage: 1 DOSE FORM (UNKNOWN), ORAL
     Route: 048
     Dates: start: 20050308, end: 20050301
  3. CISPLATIN [Suspect]
     Indication: LIP AND/OR ORAL CAVITY CANCER
     Dosage: UNKNOWN (50 MG, UNKNOWN), INTRAVENOUS
     Route: 042
     Dates: start: 20050214, end: 20050301
  4. ZOFRAN [Suspect]
     Indication: NAUSEA
     Dosage: UNKNOWN (8 MG, UNKNOWN), ORAL
     Route: 048
     Dates: start: 20050214, end: 20050301
  5. ETHYOL [Suspect]
     Indication: LIP AND/OR ORAL CAVITY CANCER
     Dosage: UNK (400 MG, UNKNOWN), INTRAVENOUS
     Route: 042
     Dates: start: 20050214, end: 20050301

REACTIONS (10)
  - BLOOD CULTURE POSITIVE [None]
  - DEHYDRATION [None]
  - DYSGEUSIA [None]
  - GENERAL PHYSICAL HEALTH DETERIORATION [None]
  - LYMPHOPENIA [None]
  - NAUSEA [None]
  - SKIN HYPERPIGMENTATION [None]
  - STAPHYLOCOCCAL INFECTION [None]
  - TOXIC EPIDERMAL NECROLYSIS [None]
  - VOMITING [None]
